FAERS Safety Report 9198746 (Version 2)
Quarter: 2013Q3

REPORT INFORMATION
  Report Type: Spontaneous
  Country: NO (occurrence: NO)
  Receive Date: 20130329
  Receipt Date: 20130912
  Transmission Date: 20140515
  Serious: Yes (Other)
  Sender: FDA-Public Use
  Company Number: NO-PFIZER INC-2013098503

PATIENT
  Sex: Male

DRUGS (6)
  1. NEURONTIN [Suspect]
     Indication: MYALGIA
     Dosage: 300 MG, IN THE EVENING/NIGHT
     Dates: start: 201210, end: 20130315
  2. ANDRIOL [Suspect]
     Dosage: 40 MG, 2X/DAY
     Route: 048
  3. REYATAZ [Concomitant]
     Indication: HIV INFECTION
     Dosage: UNK
     Dates: start: 2008
  4. TRUVADA [Concomitant]
     Indication: HIV INFECTION
     Dosage: UNK
     Dates: start: 2008
  5. NORVIR [Concomitant]
     Indication: HIV INFECTION
     Dosage: UNK
     Dates: start: 2008
  6. VITAMIN B12 [Concomitant]

REACTIONS (3)
  - Blood bilirubin increased [Unknown]
  - Yellow skin [Recovering/Resolving]
  - Off label use [Recovering/Resolving]
